FAERS Safety Report 5464314-9 (Version None)
Quarter: 2007Q3

REPORT INFORMATION
  Report Type: 
  Country: None (occurrence: None)
  Receive Date: 20070921
  Receipt Date: 20070912
  Transmission Date: 20080115
  Serious: Yes (Hospitalization)
  Sender: FDA-Public Use
  Company Number: US-ELI_LILLY_AND_COMPANY-US200611001283

PATIENT
  Age: 61 Year
  Sex: Female
  Weight: 79.365 kg

DRUGS (8)
  1. BYETTA [Suspect]
     Indication: TYPE 1 DIABETES MELLITUS
     Dosage: 5 UG, 2/D
     Route: 058
     Dates: start: 20060101, end: 20060101
  2. BYETTA [Suspect]
     Dosage: 10 UG, 2/D
     Route: 058
     Dates: start: 20060101
  3. BYETTA [Suspect]
     Dosage: 10 UG, 2/D
     Route: 058
     Dates: start: 20050801, end: 20060801
  4. BYETTA [Suspect]
     Dosage: 5 UG, 2/D
     Route: 058
     Dates: start: 20050701, end: 20050801
  5. ASACOL [Concomitant]
     Dosage: 1200 MG, 2/D
     Route: 048
  6. ASACOL [Concomitant]
     Dosage: UNK, UNKNOWN
     Route: 065
  7. INSULIN LISPRO [Concomitant]
     Indication: TYPE 1 DIABETES MELLITUS
     Dosage: UNK, UNKNOWN
     Route: 065
  8. LANTUS [Concomitant]
     Indication: TYPE 1 DIABETES MELLITUS
     Dosage: UNK, 2/D
     Route: 058

REACTIONS (5)
  - BLOOD GLUCOSE DECREASED [None]
  - BLOOD GLUCOSE INCREASED [None]
  - CROHN'S DISEASE [None]
  - DIARRHOEA [None]
  - TREMOR [None]
